FAERS Safety Report 5800106-6 (Version None)
Quarter: 2008Q3

REPORT INFORMATION
  Report Type: 
  Country: None (occurrence: None)
  Receive Date: 20080703
  Receipt Date: 20080623
  Transmission Date: 20090109
  Serious: Yes (Hospitalization, Other)
  Sender: FDA-Public Use
  Company Number: US-ROCHE-450544

PATIENT
  Sex: Female
  Weight: 44 kg

DRUGS (10)
  1. ACCUTANE [Suspect]
     Dosage: ISOTRETINOIN WAS GRADUALLY INCREASED FROM 30 MG TO 50 MG.
     Route: 065
     Dates: start: 19980114, end: 19980201
  2. ACCUTANE [Suspect]
     Route: 065
     Dates: start: 19980201, end: 19980701
  3. ACCUTANE [Suspect]
     Route: 065
     Dates: start: 20011012, end: 20020103
  4. ACCUTANE [Suspect]
     Dosage: ISOTRETINOIN WAS INCREASED TO 40 MG ALTERNATING WITH 50 MG DAILY.
     Route: 065
     Dates: start: 20020104, end: 20020201
  5. ACCUTANE [Suspect]
     Dosage: ISOTRETINOIN DOSAGE HAD BEEN REDUCED TO 40 MG DAILY.
     Route: 065
     Dates: start: 20020201, end: 20020218
  6. KEFLEX [Concomitant]
     Indication: ACNE CYSTIC
     Route: 048
     Dates: start: 19980420
  7. BIRTH CONTROL PILLS NOS [Concomitant]
     Route: 048
  8. LOESTRIN 1.5/30 [Concomitant]
     Dates: start: 20020130
  9. ALLEGRA [Concomitant]
     Route: 048
     Dates: start: 20020130
  10. RHINOCORT [Concomitant]
     Dosage: ROUTE REPORTED AS NASAL.
     Route: 050
     Dates: start: 20020130

REACTIONS (26)
  - ACNE [None]
  - ANASTOMOTIC STENOSIS [None]
  - ANDROGENETIC ALOPECIA [None]
  - ANXIETY [None]
  - ARTHRITIS [None]
  - BACK PAIN [None]
  - CERVICAL DYSPLASIA [None]
  - CLOSTRIDIUM DIFFICILE COLITIS [None]
  - COLITIS ULCERATIVE [None]
  - DEPRESSION [None]
  - DRY SKIN [None]
  - ECZEMA [None]
  - HAEMORRHOIDS [None]
  - HUMAN PAPILLOMA VIRUS TEST POSITIVE [None]
  - IRON DEFICIENCY ANAEMIA [None]
  - LIP DRY [None]
  - MICTURITION URGENCY [None]
  - OCULAR HYPERAEMIA [None]
  - OSTEOPENIA [None]
  - PANIC ATTACK [None]
  - POUCHITIS [None]
  - PROCTITIS [None]
  - SELF-INJURIOUS IDEATION [None]
  - SUICIDAL IDEATION [None]
  - UPPER RESPIRATORY TRACT INFECTION [None]
  - VULVOVAGINAL HUMAN PAPILLOMA VIRUS INFECTION [None]
